FAERS Safety Report 8530789-1 (Version None)
Quarter: 2012Q2

REPORT INFORMATION
  Report Type: 
  Country: None (occurrence: None)
  Receive Date: 20120411
  Receipt Date: 20120125
  Transmission Date: 20120825
  Serious: No
  Sender: FDA-Public Use
  Company Number: PHEH2012US002262

PATIENT
  Sex: Female

DRUGS (2)
  1. ILARIS [Suspect]
     Indication: MUCKLE-WELLS SYNDROME
     Dosage: 75 MG, Q8W, SUBCUTANEOUS
     Route: 058
     Dates: start: 20100515
  2. MULTIVITAMIN [Concomitant]

REACTIONS (2)
  - HEADACHE [None]
  - INJECTION SITE PAIN [None]
